FAERS Safety Report 12067198 (Version 1)
Quarter: 2016Q1

REPORT INFORMATION
  Report Type: Spontaneous
  Country: US (occurrence: US)
  Receive Date: 20160210
  Receipt Date: 20160210
  Transmission Date: 20160526
  Serious: No
  Sender: FDA-Public Use
  Company Number: US-JNJFOC-20160122001

PATIENT
  Sex: Female
  Weight: 117.93 kg

DRUGS (6)
  1. TOPAMAX [Suspect]
     Active Substance: TOPIRAMATE
     Indication: WEIGHT INCREASED
     Route: 048
     Dates: start: 2010
  2. TOPAMAX [Suspect]
     Active Substance: TOPIRAMATE
     Indication: NEUROPATHY PERIPHERAL
     Route: 048
     Dates: start: 2010
  3. TOPAMAX [Suspect]
     Active Substance: TOPIRAMATE
     Indication: NEUROPATHY PERIPHERAL
     Route: 048
     Dates: start: 2010
  4. TOPAMAX [Suspect]
     Active Substance: TOPIRAMATE
     Indication: WEIGHT INCREASED
     Route: 048
  5. TOPAMAX [Suspect]
     Active Substance: TOPIRAMATE
     Indication: WEIGHT INCREASED
     Route: 048
     Dates: start: 2010
  6. TOPAMAX [Suspect]
     Active Substance: TOPIRAMATE
     Indication: NEUROPATHY PERIPHERAL
     Route: 048

REACTIONS (6)
  - Off label use [Unknown]
  - Product use issue [Unknown]
  - Paraesthesia [Recovered/Resolved]
  - Memory impairment [Recovered/Resolved]
  - Feeling abnormal [Recovered/Resolved]
  - Cognitive disorder [Recovered/Resolved]
